FAERS Safety Report 5836953-4 (Version None)
Quarter: 2008Q3

REPORT INFORMATION
  Report Type: 
  Country: None (occurrence: None)
  Receive Date: 20080807
  Receipt Date: 20080728
  Transmission Date: 20090109
  Serious: Yes (Hospitalization)
  Sender: FDA-Public Use
  Company Number: JP-JNJFOC-20080707422

PATIENT
  Sex: Male
  Weight: 65 kg

DRUGS (13)
  1. REMICADE [Suspect]
     Route: 042
  2. REMICADE [Suspect]
     Route: 042
  3. REMICADE [Suspect]
     Route: 042
  4. REMICADE [Suspect]
     Route: 042
  5. REMICADE [Suspect]
     Indication: BEHCET'S SYNDROME
     Route: 042
  6. PREDONINE [Suspect]
  7. PREDONINE [Suspect]
  8. PREDONINE [Suspect]
  9. PREDONINE [Suspect]
  10. PREDONINE [Suspect]
     Indication: BEHCET'S SYNDROME
  11. COLCHICINE [Concomitant]
     Indication: BEHCET'S SYNDROME
  12. LANSOPRAZOLE [Concomitant]
  13. BONALON [Concomitant]

REACTIONS (1)
  - GASTROENTERITIS [None]
